FAERS Safety Report 9845239 (Version 3)
Quarter: 2014Q2

REPORT INFORMATION
  Report Type: Report from Study
  Country: CA (occurrence: CA)
  Receive Date: 20140127
  Receipt Date: 20140411
  Transmission Date: 20141212
  Serious: Yes (Life-Threatening)
  Sender: FDA-Public Use
  Company Number: CA-UCBSA-110440

PATIENT
  Age: 68 Year
  Sex: Female
  Weight: 84.5 kg

DRUGS (9)
  1. CERTOLIZUMAB PEGOL [Suspect]
     Indication: RHEUMATOID ARTHRITIS
     Dosage: 200 MG; NO OF DOSES RECEIVED: 9
     Route: 058
     Dates: start: 20130305, end: 20130514
  2. HUMIRA [Suspect]
     Indication: RHEUMATOID ARTHRITIS
     Dosage: 40 MG; NO OF DOSES RECEIVED: 17
     Route: 058
     Dates: start: 20130528, end: 20140120
  3. METHOTREXATE [Concomitant]
     Indication: RHEUMATOID ARTHRITIS
     Route: 048
     Dates: start: 201210
  4. DICLOFENAC SR [Concomitant]
     Indication: RHEUMATOID ARTHRITIS
     Route: 048
     Dates: start: 201205
  5. SYNTHROID [Concomitant]
     Indication: HYPOTHYROIDISM
     Route: 048
     Dates: start: 2011
  6. RABEPRAZOLE [Concomitant]
     Indication: GASTROOESOPHAGEAL REFLUX DISEASE
     Route: 048
     Dates: start: 201205
  7. FOLIC ACID [Concomitant]
     Indication: RHEUMATOID ARTHRITIS
     Dosage: 6 X S
     Route: 048
     Dates: start: 201210
  8. VITAMIN D [Concomitant]
     Indication: BONE DISORDER
     Route: 048
  9. ELTROXIN [Concomitant]
     Dosage: UNKNOWN DOSE

REACTIONS (1)
  - Invasive ductal breast carcinoma [Not Recovered/Not Resolved]
